FAERS Safety Report 6541627-0 (Version None)
Quarter: 2010Q1

REPORT INFORMATION
  Report Type: 
  Country: None (occurrence: None)
  Receive Date: 20100119
  Receipt Date: 20100108
  Transmission Date: 20100710
  Serious: Yes (Hospitalization, Other)
  Sender: FDA-Public Use
  Company Number: PR-BAYER-200940773NA

PATIENT
  Age: 74 Year
  Sex: Male
  Weight: 59 kg

DRUGS (46)
  1. LEUKINE [Suspect]
     Indication: DIFFUSE LARGE B-CELL LYMPHOMA
     Dosage: DAY 3  CYCLE 4 TO BE GIVEN X4 DAYS
     Route: 058
     Dates: start: 20091223
  2. LEUKINE [Suspect]
     Dosage: DAY 3  CYCLE 3 TO BE GIVEN X4 DAYS
     Route: 058
     Dates: start: 20091203
  3. LEUKINE [Suspect]
     Dosage: DAY 3  CYCLE 1 TO BE GIVEN X4 DAYS
     Route: 058
     Dates: start: 20091028
  4. LEUKINE [Suspect]
     Dosage: DAY 3  CYCLE 2 TO BE GIVEN X4 DAYS
     Route: 058
     Dates: start: 20091111
  5. RITUXIMAB [Suspect]
     Indication: DIFFUSE LARGE B-CELL LYMPHOMA
     Dosage: DAY 1  CYCLE 1
     Route: 042
     Dates: start: 20091026, end: 20091026
  6. RITUXIMAB [Suspect]
     Dosage: DAY 1  CYCLE 2
     Route: 042
     Dates: start: 20091110, end: 20091110
  7. RITUXIMAB [Suspect]
     Dosage: DAY 1  CYCLE4
     Route: 042
     Dates: start: 20091221, end: 20091221
  8. RITUXIMAB [Suspect]
     Dosage: DAY 1  CYCLE3
     Route: 042
     Dates: start: 20091201, end: 20091201
  9. CYCLOPHOSPHAMIDE [Suspect]
     Indication: DIFFUSE LARGE B-CELL LYMPHOMA
     Dosage: DAY 2  CYCLE4
     Route: 042
     Dates: start: 20091222, end: 20091222
  10. CYCLOPHOSPHAMIDE [Suspect]
     Dosage: DAY 2  CYCLE3 (DOSE REDUCED BY 20%)
     Route: 042
     Dates: start: 20091202, end: 20091202
  11. CYCLOPHOSPHAMIDE [Suspect]
     Dosage: DAY 2  CYCLE 2
     Route: 042
     Dates: start: 20091110, end: 20091110
  12. CYCLOPHOSPHAMIDE [Suspect]
     Dosage: DAY 2  CYCLE 1
     Route: 042
     Dates: start: 20091027, end: 20091027
  13. DOXORUBICIN HCL [Suspect]
     Indication: DIFFUSE LARGE B-CELL LYMPHOMA
     Dosage: DAY 2 CYCLE 3
     Route: 042
     Dates: start: 20091202, end: 20091202
  14. DOXORUBICIN HCL [Suspect]
     Dosage: DAY 2 CYCLE 2
     Route: 042
     Dates: start: 20091110, end: 20091110
  15. DOXORUBICIN HCL [Suspect]
     Dosage: DAY 2 CYCLE 3 (DOSE REDUCED BY 20%)
     Route: 042
     Dates: start: 20091202, end: 20091202
  16. DOXORUBICIN HCL [Suspect]
     Dosage: DAY 2 CYCLE 1
     Route: 042
     Dates: start: 20091027, end: 20091027
  17. VINCRISTINE [Suspect]
     Indication: DIFFUSE LARGE B-CELL LYMPHOMA
     Dosage: DAY 2 CYCLE 1
     Route: 042
     Dates: start: 20091027, end: 20091027
  18. VINCRISTINE [Suspect]
     Dosage: DAY 2 CYCLE 3
     Route: 042
     Dates: start: 20091202, end: 20091202
  19. VINCRISTINE [Suspect]
     Dosage: DAY 2 CYCLE 4
     Route: 042
     Dates: start: 20091222, end: 20091222
  20. VINCRISTINE [Suspect]
     Dosage: DAY 2 CYCLE 2
     Route: 042
     Dates: start: 20091110, end: 20091110
  21. NEULASTA [Suspect]
     Indication: DIFFUSE LARGE B-CELL LYMPHOMA
     Dosage: DAY 3  CYCLE 3 (DOSE INCREASED)
     Route: 058
     Dates: start: 20091203, end: 20091203
  22. NEULASTA [Suspect]
     Dosage: DAY 3  CYCLE 1
     Route: 058
     Dates: start: 20091028, end: 20091028
  23. NEULASTA [Suspect]
     Dosage: DAY 3  CYCLE 4
     Route: 058
     Dates: start: 20091223, end: 20091223
  24. NEULASTA [Suspect]
     Dosage: DAY 3  CYCLE 2
     Route: 058
     Dates: start: 20091111, end: 20091111
  25. PRANDIN [Concomitant]
  26. AVANDIA [Concomitant]
  27. AVANDIA [Concomitant]
     Dosage: TOTAL DAILY DOSE: 8 MG
  28. XANAX [Concomitant]
     Dosage: TOTAL DAILY DOSE: 2 MG
     Route: 048
  29. XANAX [Concomitant]
  30. ZOLOFT [Concomitant]
     Dosage: TOTAL DAILY DOSE: 100 MG
     Route: 048
  31. ZOLOFT [Concomitant]
     Dates: start: 20091106
  32. DIFLUCAN [Concomitant]
     Route: 042
     Dates: start: 20091120
  33. DIFLUCAN [Concomitant]
     Dosage: TOTAL DAILY DOSE: 200 MG
     Route: 048
  34. DIFLUCAN [Concomitant]
     Dates: start: 20091106, end: 20091116
  35. LEVAQUIN [Concomitant]
     Indication: MUCOSAL INFLAMMATION
     Dates: start: 20091106, end: 20091113
  36. PHENERGAN HCL [Concomitant]
     Indication: NAUSEA
     Dosage: EVERY 6 HOURS
     Dates: start: 20091229
  37. PHENERGAN HCL [Concomitant]
     Dosage: EVERY 6 HOURS
     Dates: start: 20091118
  38. VASOTEC [Concomitant]
     Indication: BLOOD PRESSURE INCREASED
     Dosage: EVERY 6 HOURS (BP 140/90)
     Route: 042
     Dates: start: 20091229
  39. VASOTEC [Concomitant]
     Dosage: EVERY 6 HOURS
     Route: 042
     Dates: start: 20091118
  40. INSULIN [Concomitant]
     Dates: start: 20091229
  41. INSULIN [Concomitant]
     Dates: start: 20091118
  42. ALPRAZOLAM [Concomitant]
     Route: 048
     Dates: start: 20091118
  43. AMBIEN [Concomitant]
     Dosage: TOTAL DAILY DOSE: 5 MG
     Route: 048
     Dates: start: 20091229
  44. AMBIEN [Concomitant]
     Route: 048
     Dates: start: 20091118
  45. ZOCOR [Concomitant]
  46. LANTUS [Concomitant]
     Dates: start: 20091202

REACTIONS (15)
  - ANAEMIA [None]
  - CELLULITIS [None]
  - DEHYDRATION [None]
  - DIABETES MELLITUS INADEQUATE CONTROL [None]
  - DIARRHOEA [None]
  - FEBRILE NEUTROPENIA [None]
  - GENERAL PHYSICAL HEALTH DETERIORATION [None]
  - HEAD INJURY [None]
  - MUCOSAL INFLAMMATION [None]
  - NEUTROPENIA [None]
  - ORAL CANDIDIASIS [None]
  - ORTHOSTATIC HYPOTENSION [None]
  - POSTOPERATIVE WOUND INFECTION [None]
  - SEPSIS SYNDROME [None]
  - THROMBOCYTOPENIA [None]
